FAERS Safety Report 19733046 (Version 1)
Quarter: 2021Q3

REPORT INFORMATION
  Report Type: Spontaneous
  Country: US (occurrence: US)
  Receive Date: 20210822
  Receipt Date: 20210822
  Transmission Date: 20211014
  Serious: Yes (Other)
  Sender: FDA-Public Use
  Company Number: None

PATIENT
  Age: 60 Year
  Sex: Female
  Weight: 71.55 kg

DRUGS (18)
  1. MAGNESIUM [Concomitant]
     Active Substance: MAGNESIUM
  2. LISINOPRIL. [Concomitant]
     Active Substance: LISINOPRIL
  3. ROSUVASTATIN. [Concomitant]
     Active Substance: ROSUVASTATIN
  4. SPIRONOLACTONE. [Concomitant]
     Active Substance: SPIRONOLACTONE
  5. VITAMIN B12 [Concomitant]
     Active Substance: CYANOCOBALAMIN
  6. BARIATRIC MULTIVITAMIN [Concomitant]
  7. ALLOPURINOL. [Concomitant]
     Active Substance: ALLOPURINOL
  8. MITIGAIRE [Concomitant]
  9. ALPRAZOLAM. [Concomitant]
     Active Substance: ALPRAZOLAM
  10. VITAMIN C [Concomitant]
     Active Substance: ASCORBIC ACID
  11. GABAPENTIN. [Concomitant]
     Active Substance: GABAPENTIN
  12. LINZESS [Concomitant]
     Active Substance: LINACLOTIDE
  13. AMLODIPINE [Concomitant]
     Active Substance: AMLODIPINE BESYLATE
  14. LEVOTHYROXINE. [Concomitant]
     Active Substance: LEVOTHYROXINE
  15. BIOTIN [Concomitant]
     Active Substance: BIOTIN
  16. HYDROCODONE [Concomitant]
     Active Substance: HYDROCODONE
  17. BUPRENORPHINE TRANSDERMAL SYSTEM [Suspect]
     Active Substance: BUPRENORPHINE
     Indication: PAIN
     Dosage: ?          OTHER STRENGTH:10,080 MCG;QUANTITY:4 PATCH(ES);OTHER FREQUENCY:1 PER WEEK;?
     Route: 062
     Dates: start: 20200930
  18. ONDANSETRON ODT [Concomitant]
     Active Substance: ONDANSETRON

REACTIONS (2)
  - Suspected product quality issue [None]
  - Application site burn [None]

NARRATIVE: CASE EVENT DATE: 20210821
